FAERS Safety Report 8818282 (Version 1)
Quarter: 2012Q4

REPORT INFORMATION
  Report Type: Report from Study
  Country: CN (occurrence: CN)
  Receive Date: 20121001
  Receipt Date: 20121001
  Transmission Date: 20130627
  Serious: Yes (Other)
  Sender: FDA-Public Use
  Company Number: CN-ROCHE-1139434

PATIENT
  Age: 50 Year
  Sex: Male
  Weight: 65 kg

DRUGS (2)
  1. PEGASYS [Suspect]
     Indication: HEPATITIS C
     Route: 058
     Dates: start: 20111209, end: 20120921
  2. PEGASYS [Suspect]
     Route: 058
     Dates: start: 20120928

REACTIONS (2)
  - Neutrophil count decreased [Unknown]
  - Bile duct stone [Unknown]
